FAERS Safety Report 6543924-1 (Version None)
Quarter: 2010Q1

REPORT INFORMATION
  Report Type: 
  Country: None (occurrence: None)
  Receive Date: 20100119
  Receipt Date: 20100119
  Transmission Date: 20100710
  Serious: Yes (Hospitalization)
  Sender: FDA-Public Use
  Company Number: None

PATIENT
  Age: 45 Year
  Sex: Female
  Weight: 113.3993 kg

DRUGS (2)
  1. MOTRIN [Suspect]
     Indication: FIBROMYALGIA
     Dosage: 800MG EVERY 12 HRS. PO
     Route: 048
  2. MOTRIN [Suspect]
     Indication: PAIN
     Dosage: 800MG EVERY 12 HRS. PO
     Route: 048

REACTIONS (4)
  - ABDOMINAL PAIN [None]
  - DIARRHOEA [None]
  - PRODUCT QUALITY ISSUE [None]
  - SHOCK [None]
